FAERS Safety Report 8188552-X (Version None)
Quarter: 2012Q1

REPORT INFORMATION
  Report Type: 
  Country: None (occurrence: None)
  Receive Date: 20120306
  Receipt Date: 20120302
  Transmission Date: 20120608
  Serious: Yes (Other)
  Sender: FDA-Public Use
  Company Number: PHHY2012CA009693

PATIENT
  Sex: Female

DRUGS (4)
  1. GILENYA [Suspect]
     Indication: RELAPSING-REMITTING MULTIPLE SCLEROSIS
     Dosage: 0.5 MG, QD
     Route: 048
     Dates: start: 20120120
  2. OXYBUTYNIN [Concomitant]
     Dosage: 5 MG, BID
  3. NEURONTIN [Concomitant]
     Dosage: 600 MG, TID
  4. TIZANIDINE HCL [Concomitant]
     Dosage: 4 MG, BID

REACTIONS (9)
  - ASTHENIA [None]
  - DIARRHOEA [None]
  - MYALGIA [None]
  - SINUS HEADACHE [None]
  - NAUSEA [None]
  - MIGRAINE [None]
  - BRADYCARDIA [None]
  - COUGH [None]
  - DIZZINESS [None]
